FAERS Safety Report 7659889-5 (Version None)
Quarter: 2011Q3

REPORT INFORMATION
  Report Type: 
  Country: None (occurrence: None)
  Receive Date: 20110805
  Receipt Date: 20110221
  Transmission Date: 20111222
  Serious: No
  Sender: FDA-Public Use
  Company Number: US-ABBOTT-11P-163-0706586-00

PATIENT
  Age: 39 Year
  Sex: Female
  Weight: 93.07 kg

DRUGS (8)
  1. ZOLOFT [Concomitant]
     Indication: ANXIETY
     Dosage: 100 MILLIGRAM, DAILY
     Dates: start: 20101101
  2. LAMICTAL [Concomitant]
     Indication: PRODUCT USED FOR UNKNOWN INDICATION
  3. GLIPIZIDE [Concomitant]
     Indication: DIABETES MELLITUS
  4. ZOLOFT [Concomitant]
     Indication: POST-TRAUMATIC STRESS DISORDER
     Dosage: 50 MILLIGRAM, DAILY, WEANING DOWN
  5. DEPAKOTE ER [Suspect]
     Indication: BIPOLAR DISORDER
     Dates: start: 20110215
  6. CLOZAPINE [Concomitant]
     Indication: ANXIETY
  7. PRAVASTATIN [Concomitant]
     Indication: BLOOD CHOLESTEROL INCREASED
  8. CLOZAPINE [Concomitant]
     Indication: PANIC ATTACK

REACTIONS (5)
  - PALPITATIONS [None]
  - ANXIETY [None]
  - EUPHORIC MOOD [None]
  - HEADACHE [None]
  - ENERGY INCREASED [None]
